FAERS Safety Report 5840082-3 (Version None)
Quarter: 2008Q3

REPORT INFORMATION
  Report Type: 
  Country: None (occurrence: None)
  Receive Date: 20080811
  Receipt Date: 20080731
  Transmission Date: 20090109
  Serious: Yes (Disabling)
  Sender: FDA-Public Use
  Company Number: A0741873A

PATIENT
  Age: 67 Year
  Sex: Male
  Weight: 89.5 kg

DRUGS (6)
  1. REQUIP [Suspect]
     Indication: DRUG USE FOR UNKNOWN INDICATION
     Dosage: 1MG THREE TIMES PER DAY
     Route: 048
     Dates: start: 20080501
  2. LISINOPRIL [Concomitant]
  3. AMANTADINE HCL [Concomitant]
  4. ARICEPT [Concomitant]
  5. ZOCOR [Concomitant]
  6. ASA BABY [Concomitant]

REACTIONS (12)
  - ASTHENIA [None]
  - CHOKING [None]
  - COGNITIVE DISORDER [None]
  - DYSPHAGIA [None]
  - HALLUCINATION [None]
  - MOTOR DYSFUNCTION [None]
  - NAUSEA [None]
  - PARKINSON'S DISEASE [None]
  - SOMNOLENCE [None]
  - TREMOR [None]
  - VOMITING [None]
  - WEIGHT DECREASED [None]
